FAERS Safety Report 6027791-0 (Version None)
Quarter: 2009Q1

REPORT INFORMATION
  Report Type: 
  Country: None (occurrence: None)
  Receive Date: 20090105
  Receipt Date: 20081223
  Transmission Date: 20090719
  Serious: Yes (Hospitalization)
  Sender: FDA-Public Use
  Company Number: US-RB-007028-08

PATIENT
  Age: 42 Year
  Sex: Male

DRUGS (5)
  1. SUBOXONE [Suspect]
     Route: 060
     Dates: start: 20081117
  2. NOVOLOG [Concomitant]
     Dosage: SLIDING SCALE DAILY
  3. GABAPENTIN [Concomitant]
  4. LANTUS [Concomitant]
     Dosage: 50 UNITS DAILY
  5. LISINOPRIL [Concomitant]

REACTIONS (4)
  - CARDIAC ENZYMES [None]
  - CARDIAC ENZYMES INCREASED [None]
  - INFLUENZA [None]
  - NAUSEA [None]
